FAERS Safety Report 7920205-2 (Version None)
Quarter: 2011Q4

REPORT INFORMATION
  Report Type: 
  Country: None (occurrence: None)
  Receive Date: 20111117
  Receipt Date: 20111109
  Transmission Date: 20120403
  Serious: Yes (Life-Threatening, Hospitalization)
  Sender: FDA-Public Use
  Company Number: FR-PFIZER INC-2011273892

PATIENT
  Age: 37 Year
  Sex: Female

DRUGS (6)
  1. ERYTHROGEL [Concomitant]
  2. ZOLPIDEM TARTRATE [Suspect]
     Indication: TOXICITY TO VARIOUS AGENTS
     Dosage: 28 DF, UNK
     Route: 048
     Dates: start: 20111001, end: 20111001
  3. TRAMADOL HCL [Suspect]
     Indication: TOXICITY TO VARIOUS AGENTS
     Dosage: 40 TABLETS OF 200MG
     Route: 048
     Dates: start: 20111001, end: 20111001
  4. OXAZEPAM [Concomitant]
     Dosage: 50 MG, UNK
  5. XANAX [Suspect]
     Indication: TOXICITY TO VARIOUS AGENTS
     Dosage: 15 DF, UNK
     Route: 048
     Dates: start: 20111001, end: 20111001
  6. ATARAX [Suspect]
     Indication: TOXICITY TO VARIOUS AGENTS
     Dosage: 80 DF, UNK
     Route: 048
     Dates: start: 20111001, end: 20111001

REACTIONS (3)
  - SUICIDE ATTEMPT [None]
  - COMA [None]
  - MULTIPLE DRUG OVERDOSE INTENTIONAL [None]
